FAERS Safety Report 9189818 (Version 1)
Quarter: 2013Q1

REPORT INFORMATION
  Report Type: Spontaneous
  Country: FR (occurrence: FR)
  Receive Date: 20130326
  Receipt Date: 20130326
  Transmission Date: 20140127
  Serious: Yes (Hospitalization)
  Sender: FDA-Public Use
  Company Number: FR-PFIZER INC-2013093972

PATIENT
  Age: 77 Year
  Sex: Female

DRUGS (8)
  1. REVATIO [Suspect]
     Dosage: UNK
     Dates: start: 20120316, end: 20120403
  2. TRACLEER [Suspect]
     Indication: PULMONARY HYPERTENSION
     Dosage: UNK
     Dates: start: 20120316, end: 20120403
  3. TRACLEER [Suspect]
     Indication: SCLERODERMA
     Dosage: UNK
     Dates: start: 20120410
  4. LASILIX [Concomitant]
  5. DIFFU K [Concomitant]
  6. TOPALGIC [Concomitant]
  7. IMODIUM [Concomitant]
  8. DAFALGAN [Concomitant]

REACTIONS (1)
  - Drug reaction with eosinophilia and systemic symptoms [Recovered/Resolved]
